FAERS Safety Report 20987582 (Version 1)
Quarter: 2022Q2

REPORT INFORMATION
  Report Type: Spontaneous
  Country: US (occurrence: None)
  Receive Date: 20220620
  Receipt Date: 20220620
  Transmission Date: 20220721
  Serious: Yes (Death)
  Sender: FDA-Public Use
  Company Number: None

PATIENT
  Sex: Female

DRUGS (3)
  1. BOTOX [Suspect]
     Active Substance: ONABOTULINUMTOXINA
     Indication: Migraine
     Dosage: INJECT IN THE MUSCLE INTO HEAD, FACE, AND NECK AREA BY PRESCRIBER EVERY 3 MONTHS
     Dates: start: 20210702, end: 20220405
  2. DEPO-MEDROL [Concomitant]
     Active Substance: METHYLPREDNISOLONE ACETATE
  3. DEXAMETH PHO [Concomitant]

REACTIONS (1)
  - Death [None]
